FAERS Safety Report 19025428 (Version 1)
Quarter: 2021Q1

REPORT INFORMATION
  Report Type: Spontaneous
  Country: US (occurrence: US)
  Receive Date: 20210316
  Receipt Date: 20210316
  Transmission Date: 20210420
  Serious: Yes (Life-Threatening, Hospitalization)
  Sender: FDA-Public Use
  Company Number: None

PATIENT
  Age: 70 Year
  Sex: Male
  Weight: 99 kg

DRUGS (1)
  1. CARBOPLATIN (CARBOPLATIN 10MG/ML INJ, SOLN) [Suspect]
     Active Substance: CARBOPLATIN
     Indication: LUNG NEOPLASM MALIGNANT
     Dosage: 224 MG QWEEK IV
     Route: 042
     Dates: start: 20190528, end: 20190702

REACTIONS (3)
  - Anaphylactic reaction [None]
  - Cardiac arrest [None]
  - Hypersensitivity [None]

NARRATIVE: CASE EVENT DATE: 20190702
